FAERS Safety Report 10201685 (Version 2)
Quarter: 2014Q2

REPORT INFORMATION
  Report Type: Report from Study
  Country: CA (occurrence: CA)
  Receive Date: 20140528
  Receipt Date: 20140613
  Transmission Date: 20141212
  Serious: Yes (Hospitalization)
  Sender: FDA-Public Use
  Company Number: CA-ABBVIE-14P-028-1240319-00

PATIENT
  Age: 65 Year
  Sex: Female
  Weight: 54.93 kg

DRUGS (2)
  1. HUMIRA [Suspect]
     Indication: POLYCHONDRITIS
     Route: 058
     Dates: start: 20110301, end: 201403
  2. HUMIRA [Suspect]
     Route: 058
     Dates: start: 20140414

REACTIONS (3)
  - Appendicitis perforated [Recovered/Resolved]
  - Appendicitis [Recovered/Resolved]
  - Drug dose omission [Unknown]
